FAERS Safety Report 8773539 (Version 2)
Quarter: 2013Q2

REPORT INFORMATION
  Report Type: Report from Study
  Country: JP (occurrence: JP)
  Receive Date: 20120907
  Receipt Date: 20130403
  Transmission Date: 20140414
  Serious: Yes (Other)
  Sender: FDA-Public Use
  Company Number: JP-009507513-1208JPN010789

PATIENT
  Age: 59 Year
  Sex: Male
  Weight: 50 kg

DRUGS (19)
  1. PEGINTRON [Suspect]
     Indication: CHRONIC HEPATITIS C
     Dosage: 80 MICROGRAM, QW
     Route: 058
     Dates: start: 20120508, end: 20120725
  2. REBETOL [Suspect]
     Indication: CHRONIC HEPATITIS C
     Dosage: 600 MG, QD
     Route: 048
     Dates: start: 20120508, end: 20120515
  3. REBETOL [Suspect]
     Dosage: 400 MG, QD
     Route: 048
     Dates: start: 20120516, end: 20120522
  4. REBETOL [Suspect]
     Dosage: 200 MG, QD
     Route: 048
     Dates: start: 20120523, end: 20120527
  5. REBETOL [Suspect]
     Dosage: 200MG/2DAYS
     Route: 048
     Dates: start: 20120528, end: 20120612
  6. REBETOL [Suspect]
     Dosage: 400 MG, QD
     Route: 048
     Dates: start: 20120704, end: 20120717
  7. REBETOL [Suspect]
     Dosage: 200 MG, QD
     Route: 048
     Dates: start: 20120718, end: 20120801
  8. REBETOL [Suspect]
     Dosage: 200 MG, QD
     Route: 048
     Dates: start: 20120613, end: 20120703
  9. TELAVIC [Suspect]
     Indication: CHRONIC HEPATITIS C
     Dosage: 2250 MG,QD
     Route: 048
     Dates: start: 20120508, end: 20120508
  10. TELAVIC [Suspect]
     Dosage: 1500 MG,QD
     Route: 048
     Dates: start: 20120509, end: 20120509
  11. TELAVIC [Suspect]
     Dosage: 750 MG, QD
     Route: 048
     Dates: start: 20120510, end: 20120529
  12. TELAVIC [Suspect]
     Dosage: 500 MG, QD
     Route: 048
     Dates: start: 20120530, end: 20120604
  13. TELAVIC [Suspect]
     Dosage: 500 MG, QD
     Route: 048
     Dates: start: 20120620, end: 20120626
  14. TELAVIC [Suspect]
     Dosage: 750 MG, QD
     Route: 048
     Dates: start: 20120627, end: 20120703
  15. TELAVIC [Suspect]
     Dosage: 1000 MG,QD
     Route: 048
     Dates: start: 20120704, end: 20120717
  16. TELAVIC [Suspect]
     Dosage: 750 MG, QD
     Route: 048
     Dates: start: 20120718, end: 20120724
  17. TELAVIC [Suspect]
     Dosage: 500 MG, QD
     Route: 048
     Dates: start: 20120725, end: 20120801
  18. ALLELOCK [Concomitant]
     Indication: PROPHYLAXIS
     Dosage: 10 MG, QD
     Route: 048
     Dates: start: 20120508
  19. RIKKUNSHI-TO [Concomitant]
     Indication: PROPHYLAXIS
     Dosage: 7.5 G,QD, FORMULATION : POR
     Route: 048
     Dates: start: 20120508, end: 20120725

REACTIONS (1)
  - Drug-induced liver injury [Recovering/Resolving]
